FAERS Safety Report 7009965-5 (Version None)
Quarter: 2010Q3

REPORT INFORMATION
  Report Type: 
  Country: None (occurrence: None)
  Receive Date: 20100923
  Receipt Date: 20100916
  Transmission Date: 20110219
  Serious: Yes (Other)
  Sender: FDA-Public Use
  Company Number: FR-AMGEN-KDL438868

PATIENT
  Age: 75 Year
  Sex: Male

DRUGS (3)
  1. NEULASTA [Suspect]
     Indication: CHEMOTHERAPY
     Dates: start: 20060101, end: 20070101
  2. IDARUBICIN HCL [Concomitant]
     Route: 042
     Dates: start: 20060101
  3. CYTARABINE [Concomitant]
     Dates: start: 20060101

REACTIONS (9)
  - BRONCHOPULMONARY ASPERGILLOSIS [None]
  - GRANULOMATOUS LIVER DISEASE [None]
  - HEPATIC FIBROSIS [None]
  - HEPATIC LESION [None]
  - HEPATIC NECROSIS [None]
  - LUNG NEOPLASM [None]
  - NEUTROPENIA [None]
  - SPLENIC LESION [None]
  - SYSTEMIC CANDIDA [None]
